FAERS Safety Report 15090092 (Version 1)
Quarter: 2018Q2

REPORT INFORMATION
  Report Type: Spontaneous
  Country: CN (occurrence: CN)
  Receive Date: 20180629
  Receipt Date: 20180629
  Transmission Date: 20180711
  Serious: Yes (Other)
  Sender: FDA-Public Use
  Company Number: CN-JNJFOC-20180626598

PATIENT
  Age: 64 Year
  Sex: Male

DRUGS (17)
  1. FENTANYL. [Suspect]
     Active Substance: FENTANYL
     Indication: PAIN
     Route: 062
     Dates: start: 20170404, end: 20170405
  2. MEROPENEM. [Concomitant]
     Active Substance: MEROPENEM
     Indication: DELIRIUM
     Route: 041
  3. MIDAZOLAM [Concomitant]
     Active Substance: MIDAZOLAM HYDROCHLORIDE
     Route: 042
  4. MORPHINE [Concomitant]
     Active Substance: MORPHINE
     Route: 042
  5. FENTANYL. [Suspect]
     Active Substance: FENTANYL
     Indication: PAIN
     Route: 062
  6. OLANZAPINE. [Concomitant]
     Active Substance: OLANZAPINE
     Route: 048
  7. FENTANYL. [Suspect]
     Active Substance: FENTANYL
     Indication: PAIN
     Route: 062
     Dates: start: 20170401
  8. OXYCODONE HYDROCHLORIDE. [Suspect]
     Active Substance: OXYCODONE HYDROCHLORIDE
     Indication: PAIN
     Route: 048
  9. HALOPERIDOL. [Concomitant]
     Active Substance: HALOPERIDOL
     Route: 030
  10. MIDAZOLAM [Concomitant]
     Active Substance: MIDAZOLAM HYDROCHLORIDE
     Route: 042
  11. PROMETHAZINE [Concomitant]
     Active Substance: PROMETHAZINE\PROMETHAZINE HYDROCHLORIDE
     Route: 065
  12. OXYCODONE HYDROCHLORIDE. [Suspect]
     Active Substance: OXYCODONE HYDROCHLORIDE
     Indication: PAIN
     Route: 048
     Dates: start: 20170329, end: 20170404
  13. DIAZEPAM. [Concomitant]
     Active Substance: DIAZEPAM
     Route: 042
  14. FENTANYL. [Suspect]
     Active Substance: FENTANYL
     Indication: PAIN
     Route: 062
     Dates: start: 20170330, end: 20170401
  15. MORPHINE SULFATE. [Suspect]
     Active Substance: MORPHINE SULFATE
     Indication: PAIN
     Route: 048
  16. HALOPERIDOL. [Concomitant]
     Active Substance: HALOPERIDOL
     Route: 030
  17. INDOMETACIN [Concomitant]
     Active Substance: INDOMETHACIN
     Route: 054

REACTIONS (2)
  - Rhabdomyolysis [Unknown]
  - Serotonin syndrome [Unknown]
